FAERS Safety Report 16903587 (Version 4)
Quarter: 2019Q4

REPORT INFORMATION
  Report Type: Spontaneous
  Country: US (occurrence: US)
  Receive Date: 20191010
  Receipt Date: 20191230
  Transmission Date: 20200122
  Serious: No
  Sender: FDA-Public Use
  Company Number: US-PFIZER INC-2019335841

PATIENT
  Age: 48 Year
  Sex: Female
  Weight: 63.5 kg

DRUGS (5)
  1. LYRICA CR [Suspect]
     Active Substance: PREGABALIN
     Dosage: 330 MG, 2X/DAY
     Route: 048
  2. LYRICA CR [Suspect]
     Active Substance: PREGABALIN
     Dosage: 2 DF, 1X/DAY (TWO TABLETS AT BEDTIME)
  3. LYRICA CR [Suspect]
     Active Substance: PREGABALIN
     Indication: MULTIPLE SCLEROSIS
     Dosage: UNK
  4. LYRICA CR [Suspect]
     Active Substance: PREGABALIN
     Indication: HERPES ZOSTER
     Dosage: 660 MG, 1X/DAY (330 MG CAPSULE- 2 AT BEDTIME EVERY NIGHT)
     Route: 048
     Dates: start: 2019
  5. LYRICA CR [Suspect]
     Active Substance: PREGABALIN
     Dosage: 330 MG, 2X/DAY
     Route: 048
     Dates: start: 2019

REACTIONS (3)
  - Product dispensing error [Unknown]
  - Malaise [Unknown]
  - Off label use [Unknown]

NARRATIVE: CASE EVENT DATE: 2019
